FAERS Safety Report 22867109 (Version 2)
Quarter: 2024Q2

REPORT INFORMATION
  Report Type: Report from Study
  Country: US (occurrence: US)
  Receive Date: 20230825
  Receipt Date: 20240402
  Transmission Date: 20240716
  Serious: Yes (Life-Threatening, Hospitalization)
  Sender: FDA-Public Use
  Company Number: US-ARGENX-2023-ARGX-US002839

PATIENT

DRUGS (2)
  1. VYVGART [Suspect]
     Active Substance: EFGARTIGIMOD ALFA-FCAB
     Indication: Myasthenia gravis
     Dosage: UNK, 1 INFUSION EACH WEEK FOR 4 WEEKS, OFF 4 WEEKS
     Route: 042
     Dates: start: 20230511, end: 20230823
  2. Immunoglobulin [Concomitant]
     Indication: Myasthenia gravis
     Dosage: UNK
     Route: 042
     Dates: start: 20230807

REACTIONS (2)
  - Myasthenia gravis crisis [Recovering/Resolving]
  - Therapeutic response shortened [Recovering/Resolving]

NARRATIVE: CASE EVENT DATE: 20230816
